FAERS Safety Report 22239612 (Version 1)
Quarter: 2023Q2

REPORT INFORMATION
  Report Type: Spontaneous
  Country: DE (occurrence: DE)
  Receive Date: 20230421
  Receipt Date: 20230421
  Transmission Date: 20230721
  Serious: Yes (Hospitalization)
  Sender: FDA-Public Use
  Company Number: DE-GLAXOSMITHKLINE-DE2023EME037880

PATIENT
  Age: 12 Year
  Sex: Female
  Weight: 37.2 kg

DRUGS (4)
  1. POLYETHYLENE GLYCOL 3350\POTASSIUM CHLORIDE\SODIUM BICARBONATE\SODIUM [Interacting]
     Active Substance: POLYETHYLENE GLYCOL 3350\POTASSIUM CHLORIDE\SODIUM BICARBONATE\SODIUM CHLORIDE
     Indication: Product used for unknown indication
     Dosage: 3 DF, 1D, 3 SAACHET DAILY, 13.8 G SACHET
     Route: 065
  2. LAMICTAL [Interacting]
     Active Substance: LAMOTRIGINE
     Indication: Product used for unknown indication
     Dosage: 150 MG, BID, 150-0-150MG
     Route: 065
  3. LAMICTAL [Interacting]
     Active Substance: LAMOTRIGINE
     Dosage: 150 MG, Z, IN THE COURSE 150-0-200MG
     Route: 065
  4. COUMADIN [Concomitant]
     Active Substance: WARFARIN SODIUM
     Indication: Product used for unknown indication
     Dosage: 5 MG, QD, AFTER INR
     Route: 065

REACTIONS (5)
  - Hospitalisation [Unknown]
  - Abdominal pain [Unknown]
  - Drug interaction [Unknown]
  - Constipation [Unknown]
  - Drug level decreased [Unknown]
